FAERS Safety Report 9542322 (Version 1)
Quarter: 2013Q3

REPORT INFORMATION
  Report Type: Spontaneous
  Country: GB (occurrence: GB)
  Receive Date: 20130923
  Receipt Date: 20130923
  Transmission Date: 20140515
  Serious: Yes (Hospitalization)
  Sender: FDA-Public Use
  Company Number: GB-009507513-1309GBR007111

PATIENT
  Age: 86 Year
  Sex: Male

DRUGS (7)
  1. MIRTAZAPINE [Suspect]
     Dosage: 15 MG, 1/1 DAY
     Route: 048
     Dates: start: 20130803, end: 20130903
  2. ASPIRIN [Concomitant]
  3. FELODIPINE [Concomitant]
  4. FINASTERIDE [Concomitant]
  5. LOSARTAN POTASSIUM [Concomitant]
  6. OXYTETRACYCLINE [Concomitant]
  7. TAMSULOSIN HYDROCHLORIDE [Concomitant]

REACTIONS (2)
  - Agitation [Recovering/Resolving]
  - Confusional state [Recovering/Resolving]
